FAERS Safety Report 9804415 (Version 1)
Quarter: 2014Q1

REPORT INFORMATION
  Report Type: Spontaneous
  Country: CA (occurrence: CA)
  Receive Date: 20140108
  Receipt Date: 20140108
  Transmission Date: 20141002
  Serious: Yes (Other)
  Sender: FDA-Public Use
  Company Number: CA-BAYER-2014-003111

PATIENT
  Age: 41 Year
  Sex: Female

DRUGS (1)
  1. GADOVIST [Suspect]
     Dosage: 6.5 ML, UNK
     Dates: start: 20140107, end: 20140107

REACTIONS (2)
  - Cough [Recovered/Resolved]
  - Throat irritation [Recovered/Resolved]
